FAERS Safety Report 5585701-4 (Version None)
Quarter: 2008Q1

REPORT INFORMATION
  Report Type: 
  Country: None (occurrence: None)
  Receive Date: 20080109
  Receipt Date: 20080102
  Transmission Date: 20080703
  Serious: Yes (Other)
  Sender: FDA-Public Use
  Company Number: US-JNJFOC-20080100570

PATIENT
  Age: 42 Year
  Sex: Female
  Weight: 113.4 kg

DRUGS (2)
  1. TOPAMAX [Suspect]
     Indication: NEURALGIA
     Route: 048
  2. CYMBALTA [Suspect]
     Indication: NEURALGIA
     Route: 048

REACTIONS (1)
  - EYE HAEMORRHAGE [None]
